FAERS Safety Report 13591769 (Version 6)
Quarter: 2017Q3

REPORT INFORMATION
  Report Type: Report from Study
  Country: NL (occurrence: NL)
  Receive Date: 20170530
  Receipt Date: 20170927
  Transmission Date: 20171127
  Serious: Yes (Death, Hospitalization)
  Sender: FDA-Public Use
  Company Number: NL-IPSEN BIOPHARMACEUTICALS, INC.-2017-04649

PATIENT
  Age: 73 Year
  Sex: Male

DRUGS (1)
  1. SOMATULINE AUTOSOLUTION 120MG [Suspect]
     Active Substance: LANREOTIDE ACETATE
     Indication: PRODUCT USED FOR UNKNOWN INDICATION
     Dosage: 120 MG
     Route: 058
     Dates: start: 20170228

REACTIONS (8)
  - Vomiting [Not Recovered/Not Resolved]
  - Asthenia [Not Recovered/Not Resolved]
  - Diarrhoea [Unknown]
  - Laboratory test abnormal [Unknown]
  - Blood potassium decreased [Unknown]
  - Diarrhoea [Not Recovered/Not Resolved]
  - Upper respiratory fungal infection [Recovering/Resolving]
  - Dehydration [Fatal]

NARRATIVE: CASE EVENT DATE: 2017
